FAERS Safety Report 8887348 (Version 1)
Quarter: 2012Q4

REPORT INFORMATION
  Report Type: 
  Country: US (occurrence: US)
  Receive Date: 20121105
  Receipt Date: 20121105
  Transmission Date: 20130627
  Serious: No
  Sender: FDA-Public Use
  Company Number: US-PFIZER INC-2012271727

PATIENT
  Age: 47 Year
  Sex: Female
  Weight: 63.49 kg

DRUGS (2)
  1. PREMPRO [Suspect]
     Indication: JITTERINESS
     Dosage: 1 DF (0.3/1.5mg), 1x/day
     Dates: start: 201210, end: 201210
  2. PREMPRO [Suspect]
     Indication: ANXIETY

REACTIONS (6)
  - Drug ineffective for unapproved indication [Unknown]
  - Headache [Recovered/Resolved]
  - Insomnia [Recovered/Resolved]
  - Dizziness [Recovered/Resolved]
  - Depression [Recovered/Resolved]
  - Nausea [Recovered/Resolved]
